FAERS Safety Report 8905286 (Version 1)
Quarter: 2012Q4

REPORT INFORMATION
  Report Type: 
  Country: CA (occurrence: CA)
  Receive Date: 20121111
  Receipt Date: 20121111
  Transmission Date: 20130627
  Serious: Yes (Other)
  Sender: FDA-Public Use
  Company Number: PHMT2007CA01430

PATIENT
  Sex: Male

DRUGS (4)
  1. SANDOSTATIN LAR [Suspect]
     Indication: METASTASES TO LIVER
     Dosage: 30 mg, UNK
     Route: 030
     Dates: start: 20051205
  2. SANDOSTATIN LAR [Suspect]
     Dosage: 20 mg, every 4 weeks
  3. ASA [Concomitant]
  4. MULTI-VIT [Concomitant]

REACTIONS (8)
  - Blood pressure decreased [Unknown]
  - Haemoglobin decreased [Unknown]
  - Cough [Unknown]
  - Influenza like illness [Unknown]
  - Nasopharyngitis [Unknown]
  - Bradycardia [Unknown]
  - Fatigue [Unknown]
  - Diarrhoea [Unknown]
